FAERS Safety Report 15401538 (Version 3)
Quarter: 2018Q4

REPORT INFORMATION
  Report Type: Spontaneous
  Country: US (occurrence: US)
  Receive Date: 20180919
  Receipt Date: 20181128
  Transmission Date: 20190204
  Serious: Yes (Other)
  Sender: FDA-Public Use
  Company Number: US-PFIZER INC-2017390941

PATIENT
  Age: 58 Year
  Sex: Female
  Weight: 122.5 kg

DRUGS (4)
  1. CORTEF [Suspect]
     Active Substance: HYDROCORTISONE
     Indication: HYPOPITUITARISM
     Dosage: 20 MG, UNK (2 TABLETS EACH FIRST THING IN THE MORNING)
     Route: 048
     Dates: start: 201703
  2. CORTEF [Suspect]
     Active Substance: HYDROCORTISONE
     Indication: ADDISON^S DISEASE
     Dosage: 20 MG, THREE TIMES A DAY (2 TABLETS EACH BETWEEN 4-6 AM, BETWEEN 10 AM-12 PM, AND BETWEEN 2-4 PM)
     Route: 048
  3. CORTEF [Suspect]
     Active Substance: HYDROCORTISONE
     Indication: ADRENAL DISORDER
     Dosage: 20 MG, FOUR TIMES A DAY (2 TABLETS, FOUR TIMES A DAY)
     Route: 048
  4. CORTEF [Suspect]
     Active Substance: HYDROCORTISONE
     Dosage: 80 MG, ONCE A DAY (DIVIDED BETWEEN 4 AM TO 6 AM)
     Route: 048

REACTIONS (6)
  - Intentional product use issue [Unknown]
  - Fall [Unknown]
  - Malaise [Unknown]
  - Vertigo [Unknown]
  - Fatigue [Unknown]
  - Head injury [Unknown]

NARRATIVE: CASE EVENT DATE: 201703
